FAERS Safety Report 18240677 (Version 1)
Quarter: 2020Q3

REPORT INFORMATION
  Report Type: Spontaneous
  Country: US (occurrence: US)
  Receive Date: 20200908
  Receipt Date: 20200908
  Transmission Date: 20201103
  Serious: No
  Sender: FDA-Public Use
  Company Number: US-SA-2020SA243450

PATIENT

DRUGS (12)
  1. ZONEGRAN [Concomitant]
     Active Substance: ZONISAMIDE
  2. TRESIBA [Concomitant]
     Active Substance: INSULIN DEGLUDEC
  3. ROSUVASTATIN CALCIUM. [Concomitant]
     Active Substance: ROSUVASTATIN CALCIUM
  4. LOSARTAN POTASSIUM. [Concomitant]
     Active Substance: LOSARTAN POTASSIUM
  5. AMITIZA [Concomitant]
     Active Substance: LUBIPROSTONE
  6. MOXATAG [Concomitant]
     Active Substance: AMOXICILLIN
  7. CLOBETASOL [Concomitant]
     Active Substance: CLOBETASOL
  8. DICYCLOMINE HCL [Concomitant]
     Active Substance: DICYCLOMINE HYDROCHLORIDE
  9. DUPIXENT [Suspect]
     Active Substance: DUPILUMAB
     Indication: DERMATITIS ATOPIC
     Dosage: 300 MG, QOW
     Route: 058
     Dates: start: 202005
  10. THERATEARS [Concomitant]
     Active Substance: CARBOXYMETHYLCELLULOSE SODIUM
  11. METOPROLOL SUCCINATE. [Concomitant]
     Active Substance: METOPROLOL SUCCINATE
  12. ZOLPIDEM TARTRATE. [Concomitant]
     Active Substance: ZOLPIDEM TARTRATE

REACTIONS (3)
  - Gingivitis [Unknown]
  - Eczema [Unknown]
  - Dermatitis [Unknown]

NARRATIVE: CASE EVENT DATE: 2020
